FAERS Safety Report 5527950-7 (Version None)
Quarter: 2007Q4

REPORT INFORMATION
  Report Type: 
  Country: None (occurrence: None)
  Receive Date: 20071128
  Receipt Date: 20071121
  Transmission Date: 20080405
  Serious: Yes (Death, Hospitalization)
  Sender: FDA-Public Use
  Company Number: DE-ROCHE-508542

PATIENT
  Age: 54 Year
  Sex: Female
  Weight: 66 kg

DRUGS (4)
  1. XELODA [Suspect]
     Indication: PANCREATIC CARCINOMA METASTATIC
     Route: 048
     Dates: start: 20070717, end: 20070723
  2. ZOSTEX [Suspect]
     Indication: TUMOUR ASSOCIATED FEVER
     Dosage: SECOND INDICATION: HERPES LABIALIS.
     Route: 048
     Dates: start: 20070712, end: 20070717
  3. ANTIBIOTIC NOS [Concomitant]
     Indication: TUMOUR ASSOCIATED FEVER
     Dosage: DRUG REPORTED AS ANTIBIOTIC TREATMENT (NOS). SECOND INDICATION: HERPES LABIALIS.
  4. CORTICOSTEROID NOS [Concomitant]
     Indication: TUMOUR ASSOCIATED FEVER
     Dosage: DRUG REPORTED AS CORTICOSTEROID TREATMENT (NOS). SECOND INDICATION: HERPES LABIALIS.

REACTIONS (5)
  - MUCOSAL INFLAMMATION [None]
  - MULTI-ORGAN FAILURE [None]
  - RASH MACULAR [None]
  - SEPTIC SHOCK [None]
  - THROMBOCYTOPENIA [None]
